FAERS Safety Report 7779130-2 (Version None)
Quarter: 2011Q3

REPORT INFORMATION
  Report Type: 
  Country: None (occurrence: None)
  Receive Date: 20110926
  Receipt Date: 20110921
  Transmission Date: 20111222
  Serious: Yes (Other)
  Sender: FDA-Public Use
  Company Number: CHPA2011US12853

PATIENT
  Age: 86 Year
  Sex: Female

DRUGS (3)
  1. PREVACID 24 HR [Suspect]
     Indication: GASTROOESOPHAGEAL REFLUX DISEASE
  2. PREVACID 24 HR [Suspect]
  3. PREVACID 24 HR [Suspect]
     Indication: HIATUS HERNIA
     Dosage: 15 MG DAILY
     Route: 048
     Dates: start: 20090101, end: 20110921

REACTIONS (5)
  - POLYP [None]
  - OFF LABEL USE [None]
  - POLYPECTOMY [None]
  - INCORRECT DRUG ADMINISTRATION DURATION [None]
  - OESOPHAGEAL DILATION PROCEDURE [None]
